FAERS Safety Report 24103344 (Version 1)
Quarter: 2024Q3

REPORT INFORMATION
  Report Type: Spontaneous
  Country: NL (occurrence: NL)
  Receive Date: 20240717
  Receipt Date: 20240717
  Transmission Date: 20241017
  Serious: Yes (Hospitalization, Other)
  Sender: AUROBINDO
  Company Number: NL-WATSON-2011-08291

PATIENT
  Age: 18 Month
  Sex: Female

DRUGS (8)
  1. PREDNISONE [Suspect]
     Active Substance: PREDNISONE
     Indication: Haemangioma
     Dosage: 4 MILLIGRAM/KILOGRAM/DAY
     Route: 065
  2. PREDNISONE [Suspect]
     Active Substance: PREDNISONE
     Dosage: 0.5 MILLIGRAM/KILOGRAM/DAY
     Route: 065
  3. PREDNISONE [Suspect]
     Active Substance: PREDNISONE
     Dosage: 0.05 MILLIGRAM/KILOGRAM
     Route: 065
  4. PREDNISONE [Suspect]
     Active Substance: PREDNISONE
     Dosage: 0.5 MG (0.1 MG/KG/DAY)
     Route: 065
  5. PREDNISONE [Suspect]
     Active Substance: PREDNISONE
     Dosage: 0.5 MG (0.05 MG/KG/DAY) EVERY OTHER WEEK
     Route: 065
  6. PREDNISONE [Suspect]
     Active Substance: PREDNISONE
     Dosage: 1 TIME 1 MG DAILY (0.1 MG/KG/DAY)
     Route: 065
  7. PROPRANOLOL [Suspect]
     Active Substance: PROPRANOLOL HYDROCHLORIDE
     Indication: Haemangioma
     Dosage: 2 MILLIGRAM/KILOGRAM, TWO TIMES A DAY
     Route: 048
  8. PROPRANOLOL [Suspect]
     Active Substance: PROPRANOLOL HYDROCHLORIDE
     Dosage: 1 MILLIGRAM/KILOGRAM, TWO TIMES A DAY
     Route: 048

REACTIONS (5)
  - Hypoglycaemia [Recovered/Resolved]
  - Adrenal insufficiency [Unknown]
  - Cushingoid [Unknown]
  - Agitation [Unknown]
  - Hypertension [Unknown]

NARRATIVE: CASE EVENT DATE: 20110101
